FAERS Safety Report 9162039 (Version 2)
Quarter: 2013Q1

REPORT INFORMATION
  Report Type: Spontaneous
  Country: US (occurrence: None)
  Receive Date: 20130220
  Receipt Date: 20130228
  Transmission Date: 20140127
  Serious: Yes (Hospitalization)
  Sender: FDA-Public Use
  Company Number: DKLU1088856

PATIENT
  Sex: Female

DRUGS (3)
  1. SABRIL [Suspect]
     Indication: INFANTILE SPASMS
     Dosage: 500 MG MILLIGRAMS, 2 IN 1 D, ORAL
     Route: 048
     Dates: start: 20130105
  2. KEPPRA (LEVETIRACETAM) [Concomitant]
  3. KLONOPIN (CLONAZEPAM) (TABLETS) [Concomitant]

REACTIONS (1)
  - Malaise [None]
